FAERS Safety Report 7316106-3 (Version None)
Quarter: 2011Q1

REPORT INFORMATION
  Report Type: 
  Country: None (occurrence: None)
  Receive Date: 20110225
  Receipt Date: 20110216
  Transmission Date: 20110831
  Serious: Yes (Other)
  Sender: FDA-Public Use
  Company Number: BR-ASTRAZENECA-2010SE18548

PATIENT
  Age: 57 Year
  Sex: Female
  Weight: 50 kg

DRUGS (5)
  1. NOLVADEX [Suspect]
     Route: 048
     Dates: start: 20100401, end: 20100901
  2. ARIMIDEX [Suspect]
     Indication: BREAST CANCER METASTATIC
     Dosage: DAILY.
     Route: 048
     Dates: start: 20090301, end: 20100401
  3. FASLODEX [Suspect]
     Indication: BREAST CANCER METASTATIC
     Dosage: MONTHLY.
     Route: 030
     Dates: start: 20040101, end: 20090101
  4. NOLVADEX [Suspect]
     Indication: BREAST CANCER METASTATIC
     Route: 048
     Dates: end: 20040101
  5. ZOMETA [Concomitant]
     Indication: BREAST CANCER
     Route: 065
     Dates: start: 20040101, end: 20060101

REACTIONS (9)
  - DEVICE FAILURE [None]
  - METASTASES TO BONE [None]
  - GINGIVAL INFECTION [None]
  - BREAST CANCER METASTATIC [None]
  - LIP DRY [None]
  - TOOTH LOSS [None]
  - LIP BLISTER [None]
  - MALAISE [None]
  - LIP SWELLING [None]
